FAERS Safety Report 12619026 (Version 3)
Quarter: 2019Q4

REPORT INFORMATION
  Report Type: Spontaneous
  Country: AU (occurrence: AU)
  Receive Date: 20160803
  Receipt Date: 20191129
  Transmission Date: 20200122
  Serious: Yes (Other)
  Sender: FDA-Public Use
  Company Number: AU-BAXALTA-2016BLT005581

PATIENT

DRUGS (6)
  1. ENOXAPARIN [Concomitant]
     Active Substance: ENOXAPARIN
     Indication: OFF LABEL USE
  2. ENOXAPARIN [Concomitant]
     Active Substance: ENOXAPARIN
     Indication: DEEP VEIN THROMBOSIS
  3. WARFARIN [Concomitant]
     Active Substance: WARFARIN
     Indication: DEEP VEIN THROMBOSIS
  4. CEPROTIN [Suspect]
     Active Substance: PROTEIN C
     Indication: PROTEIN C DEFICIENCY
     Dosage: 6000 ENZYME UNIT , 1X A WEEK
     Route: 042
  5. CEPROTIN [Suspect]
     Active Substance: PROTEIN C
     Indication: OFF LABEL USE
     Dosage: 5000 U, ENZYME UNIT X A WEEK
     Route: 042
  6. CEPROTIN [Suspect]
     Active Substance: PROTEIN C
     Dosage: 2500 ENZYME UNIT, 2X A WEEK
     Route: 058
     Dates: start: 2014

REACTIONS (2)
  - Splenic infarction [Recovered/Resolved]
  - Product dose omission [Recovered/Resolved]
